FAERS Safety Report 5724399-9 (Version None)
Quarter: 2008Q2

REPORT INFORMATION
  Report Type: 
  Country: None (occurrence: None)
  Receive Date: 20080429
  Receipt Date: 20080417
  Transmission Date: 20081010
  Serious: Yes (Hospitalization)
  Sender: FDA-Public Use
  Company Number: WAES 0804USA03991

PATIENT
  Age: 42 Year
  Sex: Female

DRUGS (1)
  1. CANCIDAS [Suspect]
     Indication: ASPERGILLOSIS
     Dosage: IV
     Route: 042
     Dates: start: 20070619, end: 20070703

REACTIONS (2)
  - ENTEROCOLITIS [None]
  - PYREXIA [None]
